FAERS Safety Report 18800374 (Version 2)
Quarter: 2021Q1

REPORT INFORMATION
  Report Type: Spontaneous
  Country: PL (occurrence: PL)
  Receive Date: 20210128
  Receipt Date: 20210205
  Transmission Date: 20210419
  Serious: Yes (Hospitalization, Other)
  Sender: FDA-Public Use
  Company Number: PL-SA-2021SA016497

PATIENT
  Age: 4 Year
  Sex: Male

DRUGS (5)
  1. CEFTRIAXONE. [Concomitant]
     Active Substance: CEFTRIAXONE
     Indication: OTITIS MEDIA
  2. CEFTRIAXONE. [Concomitant]
     Active Substance: CEFTRIAXONE
     Indication: ANTIBIOTIC THERAPY
     Dosage: 1.5 G, QD
     Route: 065
  3. ENOXAPARIN SODIUM. [Suspect]
     Active Substance: ENOXAPARIN SODIUM
     Indication: CEREBRAL VENOUS SINUS THROMBOSIS
     Dosage: 40 MG, QD
     Route: 058
  4. ENOXAPARIN SODIUM. [Suspect]
     Active Substance: ENOXAPARIN SODIUM
     Indication: ANTICOAGULANT THERAPY
     Dosage: 20 MG, BID
     Route: 065
  5. WARFARIN [Concomitant]
     Active Substance: WARFARIN
     Indication: ANTICOAGULANT THERAPY
     Dosage: 4 MG, QD
     Route: 065

REACTIONS (13)
  - Ocular vascular disorder [Recovered/Resolved]
  - Optic atrophy [Unknown]
  - Vitreous floaters [Unknown]
  - Corneal lesion [Unknown]
  - Haemorrhage [Unknown]
  - Vitreous haemorrhage [Unknown]
  - Papilloedema [Recovered/Resolved]
  - Pupillary reflex impaired [Unknown]
  - International normalised ratio increased [Recovered/Resolved]
  - Visual impairment [Not Recovered/Not Resolved]
  - Paresis [Unknown]
  - Off label use [Unknown]
  - Visual acuity reduced [Not Recovered/Not Resolved]
